FAERS Safety Report 7493514-1 (Version None)
Quarter: 2011Q2

REPORT INFORMATION
  Report Type: 
  Country: None (occurrence: None)
  Receive Date: 20110520
  Receipt Date: 20110512
  Transmission Date: 20111010
  Serious: Yes (Hospitalization, Other)
  Sender: FDA-Public Use
  Company Number: GB-SANOFI-AVENTIS-2011SA026259

PATIENT
  Age: 5 Year
  Sex: Male

DRUGS (9)
  1. LAMOTRIGINE [Suspect]
     Indication: EPILEPSY
     Route: 065
  2. CEFOTAXIME [Suspect]
     Route: 065
  3. ANTIBIOTICS [Concomitant]
  4. GENTAMICIN [Suspect]
     Route: 065
  5. VALPROATE SODIUM [Suspect]
     Route: 065
  6. ERYTHROMYCIN [Suspect]
     Route: 065
  7. PHENYTOIN [Suspect]
     Indication: STATUS EPILEPTICUS
     Route: 065
  8. CLOBAZAM [Suspect]
     Route: 065
  9. PIPERACILLIN [Suspect]
     Route: 065

REACTIONS (15)
  - STATUS EPILEPTICUS [None]
  - HYPOTONIA [None]
  - HYPOXIA [None]
  - APHASIA [None]
  - MOVEMENT DISORDER [None]
  - ISCHAEMIA [None]
  - DEVELOPMENTAL DELAY [None]
  - COGNITIVE DISORDER [None]
  - AKINESIA [None]
  - DYSTONIA [None]
  - CEREBRAL ATROPHY [None]
  - LEARNING DISORDER [None]
  - ENCEPHALOPATHY [None]
  - PYREXIA [None]
  - BRAIN OEDEMA [None]
